FAERS Safety Report 6486668-7 (Version None)
Quarter: 2009Q4

REPORT INFORMATION
  Report Type: 
  Country: None (occurrence: None)
  Receive Date: 20091210
  Receipt Date: 20091201
  Transmission Date: 20100525
  Serious: Yes (Hospitalization)
  Sender: FDA-Public Use
  Company Number: AU-ROCHE-671840

PATIENT
  Sex: Female

DRUGS (1)
  1. XELODA [Suspect]
     Indication: BREAST CANCER
     Dosage: TAKEN 2000 MG IN MORNING AND 1500 MG IN NIGHT.
     Route: 048
     Dates: start: 20090707, end: 20090721

REACTIONS (9)
  - ABASIA [None]
  - DIARRHOEA HAEMORRHAGIC [None]
  - EATING DISORDER [None]
  - HAEMOGLOBIN DECREASED [None]
  - MUCOSAL INFLAMMATION [None]
  - NEUTROPENIA [None]
  - PALMAR-PLANTAR ERYTHRODYSAESTHESIA SYNDROME [None]
  - PYREXIA [None]
  - ULCER [None]
